FAERS Safety Report 22607660 (Version 1)
Quarter: 2023Q2

REPORT INFORMATION
  Report Type: Other
  Country: ES (occurrence: ES)
  Receive Date: 20230616
  Receipt Date: 20230616
  Transmission Date: 20230722
  Serious: Yes (Life-Threatening, Hospitalization)
  Sender: FDA-Public Use
  Company Number: None

PATIENT

DRUGS (7)
  1. ATORVASTATIN [Interacting]
     Active Substance: ATORVASTATIN
     Indication: Suicidal ideation
     Dosage: 560 MILLIGRAM, 1 TOTAL
     Route: 048
     Dates: start: 20230508, end: 20230508
  2. EBASTINE [Interacting]
     Active Substance: EBASTINE
     Indication: Suicidal ideation
     Dosage: 200MG, 1 TOTAL
     Route: 048
     Dates: start: 20230508, end: 20230508
  3. FLUOXETINE [Interacting]
     Active Substance: FLUOXETINE HYDROCHLORIDE
     Indication: Suicidal ideation
     Dosage: 1000MG, 1 TOTAL
     Route: 048
     Dates: start: 20230508, end: 20230508
  4. MIRTAZAPINE [Interacting]
     Active Substance: MIRTAZAPINE
     Indication: Suicidal ideation
     Dosage: 900 MILLIGRAM, 1 TOTAL
     Route: 048
     Dates: start: 20230508, end: 20230508
  5. AMLODIPINE\HYDROCHLOROTHIAZIDE\OLMESARTAN [Interacting]
     Active Substance: AMLODIPINE\HYDROCHLOROTHIAZIDE\OLMESARTAN
     Indication: Suicidal ideation
     Dosage: 12 DOSAGE FORM, 1 TOTAL
     Route: 048
     Dates: start: 20230508, end: 20230508
  6. DEFLAZACORT [Interacting]
     Active Substance: DEFLAZACORT
     Indication: Suicidal ideation
     Dosage: 240MG, 1 TOTAL
     Route: 048
     Dates: start: 20230508, end: 20230508
  7. BROMAZEPAM [Interacting]
     Active Substance: BROMAZEPAM
     Indication: Suicidal ideation
     Dosage: 90MG, 1 TOTAL
     Route: 048
     Dates: start: 20230508, end: 20230508

REACTIONS (3)
  - Haemodynamic instability [Recovered/Resolved]
  - Depressed level of consciousness [Recovered/Resolved]
  - Pneumonia aspiration [Recovered/Resolved]

NARRATIVE: CASE EVENT DATE: 20230508
